FAERS Safety Report 18291235 (Version 5)
Quarter: 2021Q3

REPORT INFORMATION
  Report Type: Spontaneous
  Country: JP (occurrence: JP)
  Receive Date: 20200922
  Receipt Date: 20210816
  Transmission Date: 20211014
  Serious: Yes (Hospitalization, Other)
  Sender: FDA-Public Use
  Company Number: JP-AMGEN-JPNSP2019060569

PATIENT
  Age: 79 Year
  Sex: Female
  Weight: 45 kg

DRUGS (7)
  1. ROCALTROL [Concomitant]
     Active Substance: CALCITRIOL
     Dosage: 1 UG, QW
     Route: 065
     Dates: end: 20190216
  2. ROCALTROL [Concomitant]
     Active Substance: CALCITRIOL
     Dosage: 0.5 MICROGRAM, QWK
     Route: 065
     Dates: start: 20190223
  3. RENAGEL [Concomitant]
     Active Substance: SEVELAMER HYDROCHLORIDE
     Dosage: 1500 MILLIGRAM, QD
     Route: 065
     Dates: end: 20180820
  4. PARSABIV [Suspect]
     Active Substance: ETELCALCETIDE HYDROCHLORIDE
     Indication: HYPERPARATHYROIDISM SECONDARY
     Dosage: 5 MILLIGRAM, 3 TIMES/WK
     Route: 010
     Dates: start: 20180626
  5. RENAGEL [Concomitant]
     Active Substance: SEVELAMER HYDROCHLORIDE
     Dosage: 750 MILLIGRAM, QD
     Route: 065
     Dates: start: 20180821
  6. ROCALTROL [Concomitant]
     Active Substance: CALCITRIOL
     Dosage: 0.5 MICROGRAM, QWK
     Route: 065
     Dates: end: 20181218
  7. FERROMIA [Concomitant]
     Active Substance: SODIUM FERROUS CITRATE
     Dosage: 100 MG, EVERYDAY
     Route: 048

REACTIONS (15)
  - Enterocolitis [Recovered/Resolved]
  - Shunt stenosis [Recovered/Resolved]
  - Shunt stenosis [Recovering/Resolving]
  - Shunt occlusion [Recovering/Resolving]
  - Appendicitis perforated [Recovered/Resolved]
  - Shunt occlusion [Recovering/Resolving]
  - Shunt occlusion [Recovering/Resolving]
  - Radius fracture [Recovered/Resolved]
  - Shunt stenosis [Recovering/Resolving]
  - Shunt occlusion [Recovering/Resolving]
  - Shunt occlusion [Recovering/Resolving]
  - Shunt occlusion [Recovering/Resolving]
  - Contusion [Recovered/Resolved]
  - Fall [Recovered/Resolved]
  - Shunt stenosis [Recovering/Resolving]

NARRATIVE: CASE EVENT DATE: 20181104
